FAERS Safety Report 13057294 (Version 2)
Quarter: 2018Q1

REPORT INFORMATION
  Report Type: Spontaneous
  Country: DE (occurrence: DE)
  Receive Date: 20161223
  Receipt Date: 20180302
  Transmission Date: 20180508
  Serious: Yes (Death, Hospitalization, Other)
  Sender: FDA-Public Use
  Company Number: DE-MACLEODS PHARMACEUTICALS US LTD-MAC2016004085

PATIENT

DRUGS (4)
  1. CLOPIDOGREL [Suspect]
     Active Substance: CLOPIDOGREL BISULFATE
     Indication: CEREBROVASCULAR ACCIDENT
     Dosage: 75 MG, QD
     Route: 065
  2. PRADAXA [Suspect]
     Active Substance: DABIGATRAN ETEXILATE MESYLATE
     Indication: CEREBROVASCULAR ACCIDENT
     Dosage: 110 MG, BID
     Route: 065
  3. PRADAXA [Suspect]
     Active Substance: DABIGATRAN ETEXILATE MESYLATE
     Indication: PROPHYLAXIS
     Dosage: 300 MG, QD
  4. CLOPIDOGREL [Suspect]
     Active Substance: CLOPIDOGREL BISULFATE
     Indication: PROPHYLAXIS

REACTIONS (16)
  - Gastrointestinal haemorrhage [Fatal]
  - Peritonitis [Fatal]
  - Ileus paralytic [Fatal]
  - Coagulopathy [Fatal]
  - Coagulation time prolonged [Fatal]
  - Abdominal discomfort [Fatal]
  - Coagulation factor increased [Fatal]
  - Activated partial thromboplastin time prolonged [Fatal]
  - Vomiting [Fatal]
  - Anaemia [Fatal]
  - Creatinine renal clearance decreased [Fatal]
  - Rectal perforation [Fatal]
  - Drug level increased [Fatal]
  - Haemorrhage [Fatal]
  - Abdominal pain [Fatal]
  - Prothrombin time prolonged [Fatal]
